FAERS Safety Report 5614221-3 (Version None)
Quarter: 2008Q1

REPORT INFORMATION
  Report Type: 
  Country: None (occurrence: None)
  Receive Date: 20080205
  Receipt Date: 20080125
  Transmission Date: 20080703
  Serious: Yes (Hospitalization)
  Sender: FDA-Public Use
  Company Number: PHBS2008FI01356

PATIENT
  Age: 25 Year
  Sex: Male

DRUGS (9)
  1. LEPONEX [Suspect]
     Indication: PSYCHOTIC DISORDER
     Dosage: 700 MG/D
     Route: 065
  2. PEG-INTRON [Suspect]
     Dosage: 120 UG, QW
     Route: 058
  3. PEG-INTRON [Suspect]
     Dosage: 100 UG, QW
     Route: 058
  4. PEG-INTRON [Suspect]
     Dosage: 80 UG, QW
     Route: 058
  5. PEG-INTRON [Suspect]
     Dosage: 100 UG, QW
     Route: 058
  6. COPEGUS [Concomitant]
     Dosage: 1000 MG/D
  7. REBETOL [Concomitant]
     Dosage: 19000 MG/D
  8. LAMICTAL [Concomitant]
     Indication: PSYCHOTIC DISORDER
     Dosage: 200 MG/D
  9. EMCONCOR [Concomitant]
     Dosage: 5 MG/D

REACTIONS (6)
  - ALANINE AMINOTRANSFERASE INCREASED [None]
  - ASPARTATE AMINOTRANSFERASE INCREASED [None]
  - HEPATITIS C [None]
  - HEPATITIS C RNA POSITIVE [None]
  - NEUTROPHIL COUNT DECREASED [None]
  - WHITE BLOOD CELL COUNT DECREASED [None]
